FAERS Safety Report 11932390 (Version 2)
Quarter: 2016Q1

REPORT INFORMATION
  Report Type: Spontaneous
  Country: US (occurrence: US)
  Receive Date: 20160120
  Receipt Date: 20160122
  Transmission Date: 20160526
  Serious: No
  Sender: FDA-Public Use
  Company Number: US-TEVA-625040USA

PATIENT
  Sex: Male

DRUGS (3)
  1. NUVIGIL [Suspect]
     Active Substance: ARMODAFINIL
     Route: 065
  2. CARBAMAZEPINE. [Suspect]
     Active Substance: CARBAMAZEPINE
     Route: 065
  3. PROVIGIL [Suspect]
     Active Substance: MODAFINIL
     Indication: ADVERSE DRUG REACTION
     Route: 065

REACTIONS (3)
  - Product use issue [Unknown]
  - Drug ineffective [Unknown]
  - Adverse event [Unknown]
